FAERS Safety Report 22290813 (Version 2)
Quarter: 2023Q2

REPORT INFORMATION
  Report Type: Spontaneous
  Country: ES (occurrence: ES)
  Receive Date: 20230506
  Receipt Date: 20230511
  Transmission Date: 20230721
  Serious: Yes (Hospitalization, Other)
  Sender: FDA-Public Use
  Company Number: ES-CELLTRION HEALTHCARE HUNGARY KFT-2023ES008223

PATIENT
  Age: 39 Year
  Sex: Female
  Weight: 67.8 kg

DRUGS (10)
  1. LENALIDOMIDE [Suspect]
     Active Substance: LENALIDOMIDE
     Indication: Follicular lymphoma
     Dosage: 20 MILLIGRAM, ONCE A DAY
     Route: 048
     Dates: start: 20230221
  2. EPCORITAMAB [Suspect]
     Active Substance: EPCORITAMAB
     Indication: Follicular lymphoma
     Dosage: 0.16 MILLIGRAM, EVERY WEEK
     Route: 058
     Dates: start: 20230221, end: 20230221
  3. EPCORITAMAB [Suspect]
     Active Substance: EPCORITAMAB
     Dosage: 0.8 MILLIGRAM, EVERY WEEK
     Route: 058
     Dates: start: 20230228, end: 20230228
  4. EPCORITAMAB [Suspect]
     Active Substance: EPCORITAMAB
     Dosage: 24 MILLIGRAM, EVERY WEEK
     Route: 058
     Dates: start: 20230314, end: 20230328
  5. RITUXIMAB [Suspect]
     Active Substance: RITUXIMAB
     Indication: Follicular lymphoma
     Dosage: 375 MILLIGRAM/SQ. METER, EVERY WEEK
     Route: 042
     Dates: start: 20230221, end: 20230314
  6. RITUXIMAB [Suspect]
     Active Substance: RITUXIMAB
     Dosage: 375 MILLIGRAM/SQ. METER
     Route: 042
     Dates: start: 20230321, end: 20230321
  7. ACETAMINOPHEN [Concomitant]
     Active Substance: ACETAMINOPHEN
     Indication: Premedication
     Dosage: 1000 MILLIGRAM
     Route: 065
     Dates: start: 20230221
  8. ACETAMINOPHEN [Concomitant]
     Active Substance: ACETAMINOPHEN
     Indication: Cytokine release syndrome
  9. POLARAMINE [Concomitant]
     Active Substance: DEXCHLORPHENIRAMINE MALEATE
     Indication: Premedication
     Dosage: 5 MILLIGRAM, TOTAL
     Route: 065
     Dates: start: 20230221
  10. PREDNISONE [Concomitant]
     Active Substance: PREDNISONE
     Indication: Cytokine release syndrome
     Dosage: 100 MILLIGRAM, ONCE A DAY
     Route: 065
     Dates: start: 20230221, end: 20230328

REACTIONS (5)
  - Pneumonia [Not Recovered/Not Resolved]
  - Cytokine release syndrome [Unknown]
  - Conjunctivitis [Unknown]
  - Infusion related reaction [Unknown]
  - Rash [Unknown]

NARRATIVE: CASE EVENT DATE: 20230201
